FAERS Safety Report 8832001 (Version 2)
Quarter: 2014Q3

REPORT INFORMATION
  Report Type: Report from Study
  Country: US (occurrence: US)
  Receive Date: 20121009
  Receipt Date: 20140904
  Transmission Date: 20150326
  Serious: Yes (Hospitalization, Other)
  Sender: FDA-Public Use
  Company Number: US-ROCHE-1131388

PATIENT
  Sex: Male
  Weight: 78.09 kg

DRUGS (8)
  1. TYLENOL [Concomitant]
     Active Substance: ACETAMINOPHEN
     Route: 065
  2. CIMETIDINE [Concomitant]
     Active Substance: CIMETIDINE
     Route: 065
  3. RITUXAN [Suspect]
     Active Substance: RITUXIMAB
     Indication: NON-HODGKIN^S LYMPHOMA
  4. BENADRYL [Concomitant]
     Active Substance: DIPHENHYDRAMINE HYDROCHLORIDE
     Route: 065
  5. ITRACONAZOLE. [Concomitant]
     Active Substance: ITRACONAZOLE
  6. ANZEMET [Concomitant]
     Active Substance: DOLASETRON MESYLATE
     Route: 065
  7. RITUXAN [Suspect]
     Active Substance: RITUXIMAB
     Indication: WALDENSTROM^S MACROGLOBULINAEMIA
     Route: 042
     Dates: start: 19980929
  8. NEUPOGEN [Concomitant]
     Active Substance: FILGRASTIM
     Route: 065

REACTIONS (7)
  - Headache [Unknown]
  - Off label use [Unknown]
  - Bronchopulmonary aspergillosis [Unknown]
  - Rash [Unknown]
  - Bacteraemia [Unknown]
  - Flushing [Unknown]
  - Diarrhoea haemorrhagic [Unknown]
